FAERS Safety Report 7179891-X (Version None)
Quarter: 2010Q4

REPORT INFORMATION
  Report Type: 
  Country: None (occurrence: None)
  Receive Date: 20101221
  Receipt Date: 20101206
  Transmission Date: 20110411
  Serious: Yes (Other)
  Sender: FDA-Public Use
  Company Number: US-BAYER-201035232NA

PATIENT
  Sex: Female
  Weight: 59.091 kg

DRUGS (1)
  1. MIRENA [Suspect]
     Indication: CONTRACEPTION
     Dosage: FREQUENCY: CONTINUOUS
     Route: 015
     Dates: start: 20090528, end: 20100807

REACTIONS (6)
  - ABORTION SPONTANEOUS [None]
  - DEVICE EXPULSION [None]
  - DRUG EXPOSURE DURING PREGNANCY [None]
  - DRUG INEFFECTIVE [None]
  - PREGNANCY WITH CONTRACEPTIVE DEVICE [None]
  - PRODUCT QUALITY ISSUE [None]
